FAERS Safety Report 6220929-1 (Version None)
Quarter: 2009Q2

REPORT INFORMATION
  Report Type: 
  Country: None (occurrence: None)
  Receive Date: 20090610
  Receipt Date: 20090603
  Transmission Date: 20091009
  Serious: Yes (Life-Threatening)
  Sender: FDA-Public Use
  Company Number: FR-AVENTIS-200912091FR

PATIENT
  Age: 12 Year
  Sex: Male

DRUGS (7)
  1. FLAGYL [Suspect]
     Indication: DRUG USE FOR UNKNOWN INDICATION
     Dates: start: 20090331, end: 20090404
  2. SANDIMMUNE [Suspect]
     Indication: DRUG USE FOR UNKNOWN INDICATION
     Route: 042
     Dates: start: 20090403, end: 20090405
  3. REMICADE [Suspect]
     Indication: DRUG USE FOR UNKNOWN INDICATION
     Route: 042
     Dates: start: 20090129, end: 20090319
  4. SOLU-MEDROL [Concomitant]
     Dates: start: 20090331, end: 20090402
  5. SOLU-MEDROL [Concomitant]
     Route: 042
     Dates: start: 20090403, end: 20090405
  6. SOLU-MEDROL [Concomitant]
     Dates: start: 20090406, end: 20090401
  7. SOLU-MEDROL [Concomitant]
     Dates: start: 20090401, end: 20090424

REACTIONS (1)
  - PANCREATITIS ACUTE [None]
